FAERS Safety Report 5739764-3 (Version None)
Quarter: 2008Q2

REPORT INFORMATION
  Report Type: 
  Country: None (occurrence: None)
  Receive Date: 20080512
  Receipt Date: 20080512
  Transmission Date: 20081010
  Serious: No
  Sender: FDA-Public Use
  Company Number: None

PATIENT
  Age: 52 Year
  Sex: Female
  Weight: 59.4212 kg

DRUGS (1)
  1. ULTRAM ER [Suspect]
     Indication: PAIN
     Dosage: ONE TABLET ONCE/DAY PO
     Route: 048
     Dates: start: 20080502, end: 20080502

REACTIONS (5)
  - ASTHENIA [None]
  - DIZZINESS [None]
  - NAUSEA [None]
  - RESPIRATORY RATE DECREASED [None]
  - SEDATION [None]
